FAERS Safety Report 17337949 (Version 1)
Quarter: 2020Q1

REPORT INFORMATION
  Report Type: Report from Study
  Country: DK (occurrence: DK)
  Receive Date: 20200129
  Receipt Date: 20200129
  Transmission Date: 20200409
  Serious: Yes (Death, Other)
  Sender: FDA-Public Use
  Company Number: DK-ROCHE-2532426

PATIENT

DRUGS (1)
  1. CAPECITABINE. [Suspect]
     Active Substance: CAPECITABINE
     Indication: COLORECTAL CANCER
     Route: 048

REACTIONS (5)
  - Acute myocardial infarction [Unknown]
  - Chest pain [Unknown]
  - Angina pectoris [Unknown]
  - Cardiac arrest [Fatal]
  - Sudden death [Fatal]
